FAERS Safety Report 8117678-1 (Version None)
Quarter: 2011Q4

REPORT INFORMATION
  Report Type: 
  Country: None (occurrence: None)
  Receive Date: 20111227
  Receipt Date: 20101214
  Transmission Date: 20120403
  Serious: Yes (Disabling)
  Sender: FDA-Public Use
  Company Number: PHHY2010US81115

PATIENT
  Age: 76 Year
  Sex: Female
  Weight: 170 kg

DRUGS (6)
  1. COZAAR [Concomitant]
  2. ASPIRIN [Concomitant]
  3. FORTAMET [Concomitant]
  4. COREG [Concomitant]
  5. FEMARA [Suspect]
     Indication: BREAST CANCER
     Dosage: 2.5 MG, QD, ORAL
     Route: 048
  6. CRESTOR (ROSUVASTATIN CALSIUM) [Concomitant]

REACTIONS (1)
  - BACK PAIN [None]
